FAERS Safety Report 4970355-8 (Version None)
Quarter: 2006Q2

REPORT INFORMATION
  Report Type: 
  Country: None (occurrence: None)
  Receive Date: 20060406
  Receipt Date: 20060327
  Transmission Date: 20061013
  Serious: Yes (Disabling)
  Sender: FDA-Public Use
  Company Number: A044-002-05961

PATIENT
  Age: 67 Year
  Sex: Male

DRUGS (4)
  1. ARICEPT [Suspect]
     Indication: DEMENTIA ALZHEIMER'S TYPE
     Dosage: ORAL
     Route: 048
     Dates: start: 20010801, end: 20060207
  2. CHLORPROMAZINE [Suspect]
     Indication: AGITATION
     Dosage: 25 MG, 1 IN 1 D, ORAL; 75 MG, 3 IN 1 D, ORAL
     Route: 048
     Dates: start: 20060101, end: 20060101
  3. CHLORPROMAZINE [Suspect]
     Indication: AGITATION
     Dosage: 25 MG, 1 IN 1 D, ORAL; 75 MG, 3 IN 1 D, ORAL
     Route: 048
     Dates: start: 20060101, end: 20060101
  4. PROCYCLIDINE HYDROCHLORIDE 2MG TAB [Suspect]
     Indication: MUSCLE RIGIDITY
     Dates: start: 20060201, end: 20060213

REACTIONS (14)
  - AGGRESSION [None]
  - AGITATION [None]
  - ANXIETY [None]
  - BLOOD CREATINE PHOSPHOKINASE INCREASED [None]
  - CONFUSIONAL STATE [None]
  - DELIRIUM [None]
  - DEMENTIA [None]
  - DISEASE PROGRESSION [None]
  - DRUG INTERACTION [None]
  - DRUG WITHDRAWAL SYNDROME [None]
  - HALLUCINATION, VISUAL [None]
  - MYOCLONIC EPILEPSY [None]
  - NEUROLEPTIC MALIGNANT SYNDROME [None]
  - PETIT MAL EPILEPSY [None]
